FAERS Safety Report 5662733-9 (Version None)
Quarter: 2008Q1

REPORT INFORMATION
  Report Type: 
  Country: None (occurrence: None)
  Receive Date: 20080313
  Receipt Date: 20080304
  Transmission Date: 20080703
  Serious: Yes (Death, Life-Threatening, Hospitalization)
  Sender: FDA-Public Use
  Company Number: GB-AVENTIS-200520741GDDC

PATIENT
  Age: 75 Year
  Sex: Male
  Weight: 74.5 kg

DRUGS (2)
  1. DOCETAXEL [Suspect]
     Dates: start: 20051004, end: 20051115
  2. PREDNISOLONE [Suspect]
     Dates: start: 20051005, end: 20051128

REACTIONS (4)
  - ASPIRATION [None]
  - DEATH [None]
  - DYSPNOEA [None]
  - PULMONARY OEDEMA [None]
